FAERS Safety Report 8451838-5 (Version None)
Quarter: 2012Q2

REPORT INFORMATION
  Report Type: 
  Country: None (occurrence: None)
  Receive Date: 20120620
  Receipt Date: 20120328
  Transmission Date: 20120825
  Serious: No
  Sender: FDA-Public Use
  Company Number: US-VERTEX PHARMACEUTICALS INC.-AE-2012-004068

PATIENT
  Sex: Male

DRUGS (3)
  1. PEGASYS [Concomitant]
     Indication: HEPATITIS C
     Dates: start: 20110331, end: 20120217
  2. INCIVEK [Suspect]
     Indication: HEPATITIS C
     Route: 048
     Dates: start: 20110506, end: 20110830
  3. RIBAVIRIN [Concomitant]
     Indication: HEPATITIS C
     Dates: start: 20110331, end: 20120223

REACTIONS (6)
  - WHITE BLOOD CELL COUNT DECREASED [None]
  - RASH MACULAR [None]
  - ANAEMIA [None]
  - DIZZINESS [None]
  - LETHARGY [None]
  - PLATELET COUNT DECREASED [None]
